FAERS Safety Report 9322543 (Version 1)
Quarter: 2013Q2

REPORT INFORMATION
  Report Type: Spontaneous
  Country: IT (occurrence: IT)
  Receive Date: 20130531
  Receipt Date: 20130531
  Transmission Date: 20140414
  Serious: Yes (Other)
  Sender: FDA-Public Use
  Company Number: IT-ASTRAZENECA-2013SE37588

PATIENT
  Age: 23309 Day
  Sex: Female

DRUGS (1)
  1. MEROPENEM [Suspect]
     Indication: ABDOMINAL INFECTION
     Route: 042
     Dates: start: 20130418, end: 20130418

REACTIONS (2)
  - Chills [Recovering/Resolving]
  - Hyperpyrexia [Recovering/Resolving]
